FAERS Safety Report 6271709-2 (Version None)
Quarter: 2009Q3

REPORT INFORMATION
  Report Type: 
  Country: None (occurrence: None)
  Receive Date: 20090716
  Receipt Date: 20090716
  Transmission Date: 20100115
  Serious: Yes (Life-Threatening, Hospitalization)
  Sender: FDA-Public Use
  Company Number: None

PATIENT
  Age: 60 Year
  Sex: Male
  Weight: 73.4827 kg

DRUGS (11)
  1. SIMVASTATIN [Suspect]
     Indication: HYPERLIPIDAEMIA
     Dosage: 80MG PO QHS (40MG HS SINCE 2002; 80MG SINCE 5/09)
     Route: 048
  2. GEMFIBROZIL [Suspect]
     Indication: HYPERLIPIDAEMIA
     Dosage: 600MG PO BID
     Route: 048
     Dates: start: 20090501, end: 20090701
  3. FISH OIL [Concomitant]
  4. CLOPIDOGREL [Concomitant]
  5. GLIPIZIDE [Concomitant]
  6. FOLIC ACID [Concomitant]
  7. INFLIXIMAB [Concomitant]
  8. LISINOPRIL [Concomitant]
  9. ASPIRIN [Concomitant]
  10. METOPROLOL SUCCINATE [Concomitant]
  11. .. [Concomitant]

REACTIONS (3)
  - HYPOAESTHESIA [None]
  - RHABDOMYOLYSIS [None]
  - SENSATION OF HEAVINESS [None]
